FAERS Safety Report 8450198-3 (Version None)
Quarter: 2012Q2

REPORT INFORMATION
  Report Type: 
  Country: None (occurrence: None)
  Receive Date: 20120620
  Receipt Date: 20120612
  Transmission Date: 20120825
  Serious: Yes (Hospitalization, Other)
  Sender: FDA-Public Use
  Company Number: US-BAYER-2012-037864

PATIENT
  Age: 29 Year
  Sex: Female
  Weight: 106.58 kg

DRUGS (8)
  1. DROSPIRENONE AND ETHINYL ESTRADIOL [Suspect]
     Indication: CONTRACEPTION
     Dosage: UNK
     Dates: start: 20070101, end: 20090101
  2. YASMIN [Suspect]
     Indication: CONTRACEPTION
     Dosage: UNK
     Dates: start: 20070101, end: 20090101
  3. CRESTOR [Concomitant]
     Dosage: 5 MG, QD
     Route: 048
     Dates: start: 20090605
  4. PREVACID [Concomitant]
     Dosage: 30 MG, QD
     Route: 048
     Dates: start: 20090605
  5. FLONASE [Concomitant]
     Dosage: UNK UNK, PRN
     Route: 045
     Dates: start: 20090812
  6. IBUPROFEN [Concomitant]
     Indication: PAIN
     Dosage: 3 TABLETS DAILY
  7. MULTIVITAMINS AND IRON [Concomitant]
     Dosage: UNK UNK, QD
     Route: 048
     Dates: start: 20090812
  8. NSAID'S [Concomitant]
     Indication: ABDOMINAL PAIN UPPER
     Dosage: 2 PILLS EVERY 4 HOURS
     Dates: start: 20091020, end: 20091029

REACTIONS (11)
  - INTESTINAL INFARCTION [None]
  - EMOTIONAL DISTRESS [None]
  - INFECTION [None]
  - FAECAL INCONTINENCE [None]
  - FEAR OF DEATH [None]
  - INJURY [None]
  - DEPRESSION [None]
  - THROMBOSIS [None]
  - NERVOUSNESS [None]
  - MESENTERIC VEIN THROMBOSIS [None]
  - ABDOMINAL PAIN UPPER [None]
